FAERS Safety Report 17499066 (Version 1)
Quarter: 2020Q1

REPORT INFORMATION
  Report Type: Spontaneous
  Country: GB (occurrence: GB)
  Receive Date: 20200305
  Receipt Date: 20200305
  Transmission Date: 20200409
  Serious: Yes (Other)
  Sender: FDA-Public Use
  Company Number: GB-BRISTOL-MYERS SQUIBB COMPANY-BMS-2020-019175

PATIENT
  Age: 51 Year

DRUGS (3)
  1. DASATINIB. [Suspect]
     Active Substance: DASATINIB
     Indication: CHRONIC MYELOID LEUKAEMIA
     Dosage: UNK
     Route: 065
  2. BISOPROLOL [Concomitant]
     Active Substance: BISOPROLOL
     Indication: LEFT VENTRICULAR DYSFUNCTION
     Dosage: UNK
     Route: 065
  3. VALSARTAN. [Concomitant]
     Active Substance: VALSARTAN
     Indication: LEFT VENTRICULAR DYSFUNCTION
     Dosage: UNK
     Route: 065

REACTIONS (2)
  - Drug intolerance [Unknown]
  - Cardiotoxicity [Unknown]
